FAERS Safety Report 20493138 (Version 5)
Quarter: 2024Q1

REPORT INFORMATION
  Report Type: Spontaneous
  Country: US (occurrence: US)
  Receive Date: 20220220
  Receipt Date: 20240208
  Transmission Date: 20240410
  Serious: No
  Sender: FDA-Public Use
  Company Number: US-BIOGEN-2022BI01097638

PATIENT
  Age: 57 Year
  Sex: Female

DRUGS (2)
  1. TECFIDERA [Suspect]
     Active Substance: DIMETHYL FUMARATE
     Indication: Multiple sclerosis
     Dosage: 240 MILLIGRAM/MILLILITER?MAINTENANCE DOSE
     Route: 050
     Dates: start: 20161003
  2. TECFIDERA [Suspect]
     Active Substance: DIMETHYL FUMARATE
     Dosage: 120 MILLIGRAM/MILLILITER?STARTING DOSE
     Route: 050
     Dates: start: 20160926, end: 20161003

REACTIONS (4)
  - Sinus headache [Unknown]
  - Cough [Unknown]
  - Musculoskeletal disorder [Unknown]
  - Migraine [Unknown]

NARRATIVE: CASE EVENT DATE: 20220214
